FAERS Safety Report 23632909 (Version 2)
Quarter: 2024Q2

REPORT INFORMATION
  Report Type: Spontaneous
  Country: US (occurrence: US)
  Receive Date: 20240314
  Receipt Date: 20240501
  Transmission Date: 20240716
  Serious: Yes (Death, Hospitalization, Other)
  Sender: FDA-Public Use
  Company Number: US-VERTEX PHARMACEUTICALS-2024-004259

PATIENT
  Sex: Male

DRUGS (1)
  1. TRIKAFTA [Suspect]
     Active Substance: ELEXACAFTOR\IVACAFTOR\TEZACAFTOR
     Indication: Cystic fibrosis
     Dosage: UNK FREQ
     Route: 048
     Dates: start: 20230111, end: 2023

REACTIONS (5)
  - Acute respiratory failure [Fatal]
  - Transplant rejection [Fatal]
  - Pneumonia pseudomonal [Fatal]
  - Lung transplant rejection [Fatal]
  - Lung abscess [Fatal]

NARRATIVE: CASE EVENT DATE: 20230101
